FAERS Safety Report 10156379 (Version 1)
Quarter: 2014Q2

REPORT INFORMATION
  Report Type: Spontaneous
  Country: IE (occurrence: IE)
  Receive Date: 20140507
  Receipt Date: 20140507
  Transmission Date: 20141212
  Serious: Yes (Hospitalization)
  Sender: FDA-Public Use
  Company Number: IE-BRISTOL-MYERS SQUIBB COMPANY-20695250

PATIENT
  Sex: 0

DRUGS (1)
  1. ELIQUIS [Suspect]

REACTIONS (1)
  - Dyspnoea [Recovered/Resolved]
